FAERS Safety Report 4916480-9 (Version None)
Quarter: 2006Q1

REPORT INFORMATION
  Report Type: 
  Country: None (occurrence: None)
  Receive Date: 20060214
  Receipt Date: 20060202
  Transmission Date: 20060701
  Serious: Yes (Other)
  Sender: FDA-Public Use
  Company Number: 2006019089

PATIENT
  Sex: Female

DRUGS (1)
  1. SPIRONOLACTONE [Suspect]
     Indication: PRIMARY HYPERALDOSTERONISM
     Dosage: 75 MG

REACTIONS (2)
  - DIABETES MELLITUS [None]
  - IATROGENIC INJURY [None]
